FAERS Safety Report 8168127-9 (Version None)
Quarter: 2012Q1

REPORT INFORMATION
  Report Type: 
  Country: None (occurrence: None)
  Receive Date: 20120227
  Receipt Date: 20120216
  Transmission Date: 20120608
  Serious: Yes (Hospitalization, Other)
  Sender: FDA-Public Use
  Company Number: US-ACTELION-A-US2012-59684

PATIENT

DRUGS (5)
  1. TRACLEER [Suspect]
     Indication: PULMONARY ARTERIAL HYPERTENSION
     Dosage: UNK
     Route: 048
     Dates: start: 20070101
  2. CIALIS [Concomitant]
  3. CALCIUM CHANNEL BLOCKERS [Concomitant]
  4. DIGOXIN [Concomitant]
  5. OXYGEN [Concomitant]

REACTIONS (6)
  - BLOOD BILIRUBIN INCREASED [None]
  - MALAISE [None]
  - CONFUSIONAL STATE [None]
  - DISCOMFORT [None]
  - FLUID RETENTION [None]
  - HEPATIC ENCEPHALOPATHY [None]
